FAERS Safety Report 8491875-8 (Version None)
Quarter: 2012Q3

REPORT INFORMATION
  Report Type: 
  Country: None (occurrence: None)
  Receive Date: 20120706
  Receipt Date: 20110919
  Transmission Date: 20120928
  Serious: No
  Sender: FDA-Public Use
  Company Number: US-GLAXOSMITHKLINE-A0945163A

PATIENT
  Age: 55 Year
  Sex: Female

DRUGS (7)
  1. EFFEXOR [Concomitant]
  2. LORAZEPAM [Concomitant]
  3. COMBIVENT [Concomitant]
  4. FLOVENT [Suspect]
     Indication: WHEEZING
     Dosage: 2PUFF TWICE PER DAY
     Route: 055
     Dates: start: 20080101
  5. RANITIDINE [Concomitant]
  6. ZOCOR [Concomitant]
  7. TRAZODONE HCL [Concomitant]

REACTIONS (1)
  - WEIGHT INCREASED [None]
